FAERS Safety Report 16774065 (Version 1)
Quarter: 2019Q3

REPORT INFORMATION
  Report Type: Spontaneous
  Country: US (occurrence: US)
  Receive Date: 20190905
  Receipt Date: 20190905
  Transmission Date: 20191005
  Serious: Yes (Other)
  Sender: FDA-Public Use
  Company Number: US-LUPIN PHARMACEUTICALS INC.-2018-09006

PATIENT
  Sex: Female

DRUGS (1)
  1. AMLODIPINE BESYLATE TABLETS USP, 5 MG [Suspect]
     Active Substance: AMLODIPINE BESYLATE
     Dosage: UNK
     Route: 065
     Dates: start: 20150417, end: 20150421

REACTIONS (2)
  - Drug hypersensitivity [Unknown]
  - Hypertension [Unknown]
